FAERS Safety Report 12740386 (Version 1)
Quarter: 2016Q3

REPORT INFORMATION
  Report Type: Spontaneous
  Country: US (occurrence: US)
  Receive Date: 20160913
  Receipt Date: 20160913
  Transmission Date: 20161109
  Serious: No
  Sender: FDA-Public Use
  Company Number: US-009507513-1609USA004763

PATIENT
  Sex: Male
  Weight: 70.31 kg

DRUGS (1)
  1. NASONEX [Suspect]
     Active Substance: MOMETASONE FUROATE
     Indication: SINUSITIS

REACTIONS (5)
  - Headache [Unknown]
  - Drug ineffective for unapproved indication [Unknown]
  - Feeling cold [Unknown]
  - Product use issue [Unknown]
  - Sinusitis [Unknown]
